FAERS Safety Report 5093592-3 (Version None)
Quarter: 2006Q3

REPORT INFORMATION
  Report Type: 
  Country: None (occurrence: None)
  Receive Date: 20060829
  Receipt Date: 20060814
  Transmission Date: 20061208
  Serious: Yes (Other)
  Sender: FDA-Public Use
  Company Number: 2006BH012753

PATIENT
  Sex: Male

DRUGS (1)
  1. MORPHINE SULFATE [Suspect]
     Indication: PAIN
     Dosage: CONTINUOUS;INTH
     Route: 037

REACTIONS (2)
  - CATHETER RELATED COMPLICATION [None]
  - LOSS OF CONSCIOUSNESS [None]
